FAERS Safety Report 6302432-3 (Version None)
Quarter: 2009Q3

REPORT INFORMATION
  Report Type: 
  Country: None (occurrence: None)
  Receive Date: 20090810
  Receipt Date: 20090803
  Transmission Date: 20100115
  Serious: No
  Sender: FDA-Public Use
  Company Number: US-JNJFOC-20090800916

PATIENT
  Sex: Male
  Weight: 123.38 kg

DRUGS (3)
  1. FENTANYL TRANSDERMAL SYSTEM [Suspect]
     Indication: NEUROPATHY PERIPHERAL
     Route: 062
  2. INSULIN [Concomitant]
     Indication: DIABETES MELLITUS
     Route: 058
  3. DIABETES MEDICATION [Concomitant]
     Indication: DIABETES MELLITUS
     Route: 048

REACTIONS (4)
  - APPLICATION SITE IRRITATION [None]
  - APPLICATION SITE VESICLES [None]
  - DEVICE ADHESION ISSUE [None]
  - WRONG TECHNIQUE IN DRUG USAGE PROCESS [None]
